FAERS Safety Report 19698152 (Version 2)
Quarter: 2021Q3

REPORT INFORMATION
  Report Type: Report from Study
  Country: None (occurrence: US)
  Receive Date: 20210812
  Receipt Date: 20210818
  Transmission Date: 20211014
  Serious: Yes (Other)
  Sender: FDA-Public Use
  Company Number: US-ABBVIE-21K-163-4012887-00

PATIENT
  Age: 55 Year
  Sex: Female
  Weight: 73.09 kg

DRUGS (3)
  1. PFIZER?BIONTECH COVID?19 VACCINE [Concomitant]
     Active Substance: TOZINAMERAN
     Route: 030
     Dates: start: 202104, end: 202104
  2. PFIZER?BIONTECH COVID?19 VACCINE [Concomitant]
     Active Substance: TOZINAMERAN
     Indication: COVID-19 IMMUNISATION
     Route: 030
     Dates: start: 202104, end: 202104
  3. HUMIRA [Suspect]
     Active Substance: ADALIMUMAB
     Indication: RHEUMATOID ARTHRITIS
     Dosage: CF
     Route: 058
     Dates: start: 202009

REACTIONS (4)
  - Haemoglobin decreased [Recovering/Resolving]
  - Haematocrit decreased [Recovering/Resolving]
  - Intestinal haemorrhage [Unknown]
  - Weight decreased [Recovering/Resolving]

NARRATIVE: CASE EVENT DATE: 202105
